FAERS Safety Report 18223916 (Version 1)
Quarter: 2020Q3

REPORT INFORMATION
  Report Type: Spontaneous
  Country: US (occurrence: US)
  Receive Date: 20200902
  Receipt Date: 20200902
  Transmission Date: 20201103
  Serious: Yes (Other)
  Sender: FDA-Public Use
  Company Number: US-PURDUE-USA-2020-0164325

PATIENT
  Sex: Male

DRUGS (3)
  1. BUPRENORPHINE (SIMILAR TO NDA 21?306) [Suspect]
     Active Substance: BUPRENORPHINE
     Indication: PRODUCT USED FOR UNKNOWN INDICATION
     Route: 048
  2. OXYCONTIN [Suspect]
     Active Substance: OXYCODONE HYDROCHLORIDE
     Indication: PRODUCT USED FOR UNKNOWN INDICATION
     Route: 048
  3. SUBOXONE [Suspect]
     Active Substance: BUPRENORPHINE HYDROCHLORIDE\NALOXONE HYDROCHLORIDE
     Indication: PRODUCT USED FOR UNKNOWN INDICATION
     Route: 065

REACTIONS (9)
  - Anxiety [Unknown]
  - Libido decreased [Unknown]
  - Depression [Unknown]
  - Hepatitis C [Unknown]
  - Sleep apnoea syndrome [Unknown]
  - Drug abuse [Unknown]
  - Drug dependence [Unknown]
  - Constipation [Unknown]
  - Nasal injury [Unknown]
